FAERS Safety Report 22955654 (Version 3)
Quarter: 2023Q4

REPORT INFORMATION
  Report Type: Report from Study
  Country: US (occurrence: US)
  Receive Date: 20230918
  Receipt Date: 20231212
  Transmission Date: 20240110
  Serious: No
  Sender: FDA-Public Use
  Company Number: US-002147023-NVSC2023US201312

PATIENT
  Sex: Female

DRUGS (1)
  1. KISQALI [Suspect]
     Active Substance: RIBOCICLIB
     Indication: Product used for unknown indication
     Dosage: UNK
     Route: 065

REACTIONS (7)
  - Hot flush [Unknown]
  - Fatigue [Unknown]
  - Dyspepsia [Unknown]
  - Cough [Recovered/Resolved]
  - Diarrhoea [Unknown]
  - Memory impairment [Unknown]
  - Rash [Unknown]
